FAERS Safety Report 7851380-6 (Version None)
Quarter: 2011Q4

REPORT INFORMATION
  Report Type: 
  Country: None (occurrence: None)
  Receive Date: 20111024
  Receipt Date: 20111011
  Transmission Date: 20120403
  Serious: Yes (Death, Hospitalization)
  Sender: FDA-Public Use
  Company Number: 124926

PATIENT
  Age: 51 Year
  Sex: Female

DRUGS (2)
  1. CISPLATIN [Suspect]
  2. CARBOPLATIN [Suspect]

REACTIONS (10)
  - MENINGITIS [None]
  - HEADACHE [None]
  - MOOD ALTERED [None]
  - TRANSIENT ISCHAEMIC ATTACK [None]
  - CONVULSION [None]
  - DRUG ERUPTION [None]
  - LOSS OF CONSCIOUSNESS [None]
  - METASTASES TO MENINGES [None]
  - INAPPROPRIATE ANTIDIURETIC HORMONE SECRETION [None]
  - ATAXIA [None]
